FAERS Safety Report 13625779 (Version 1)
Quarter: 2017Q2

REPORT INFORMATION
  Report Type: Spontaneous
  Country: CN (occurrence: CN)
  Receive Date: 20170607
  Receipt Date: 20170607
  Transmission Date: 20170830
  Serious: Yes (Hospitalization, Other)
  Sender: FDA-Public Use
  Company Number: CN-PFIZER INC-2017246823

PATIENT
  Age: 52 Year
  Sex: Female
  Weight: 64 kg

DRUGS (4)
  1. NORVASC [Suspect]
     Active Substance: AMLODIPINE BESYLATE
     Indication: RENAL IMPAIRMENT
     Dosage: 5 MG, 1X/DAY
     Route: 048
     Dates: start: 20170323, end: 20170405
  2. SODIUM BICARBONATE. [Suspect]
     Active Substance: SODIUM BICARBONATE
     Indication: RENAL IMPAIRMENT
     Dosage: 500 MG, 3X/DAY
     Route: 048
     Dates: start: 20170323, end: 20170403
  3. YOU JIA [Suspect]
     Active Substance: ATORVASTATIN CALCIUM
     Indication: RENAL IMPAIRMENT
     Dosage: 10 MG, 1X/DAY
     Route: 048
     Dates: start: 20170323, end: 20170330
  4. NIAODUQING [Suspect]
     Active Substance: HERBALS
     Indication: RENAL IMPAIRMENT
     Dosage: 2 DF (2 BAGS), 4X/DAY
     Route: 048
     Dates: start: 20170323, end: 20170403

REACTIONS (8)
  - Pruritus [Recovering/Resolving]
  - Abdominal pain [Recovering/Resolving]
  - Rash maculo-papular [Recovering/Resolving]
  - Dyspepsia [Recovering/Resolving]
  - Eczema [Recovering/Resolving]
  - Flushing [Recovering/Resolving]
  - Vomiting [Recovering/Resolving]
  - Hiccups [Recovering/Resolving]

NARRATIVE: CASE EVENT DATE: 20170330
